FAERS Safety Report 23270390 (Version 3)
Quarter: 2024Q1

REPORT INFORMATION
  Report Type: Report from Study
  Country: US (occurrence: US)
  Receive Date: 20231207
  Receipt Date: 20240115
  Transmission Date: 20240410
  Serious: No
  Sender: FDA-Public Use
  Company Number: US-BRISTOL-MYERS SQUIBB COMPANY-2023-176440

PATIENT
  Age: 73 Year
  Sex: Male
  Weight: 57.6 kg

DRUGS (5)
  1. SPRYCEL [Suspect]
     Active Substance: DASATINIB
     Indication: Chronic myeloid leukaemia
     Route: 048
     Dates: start: 20231121, end: 20231130
  2. SPRYCEL [Suspect]
     Active Substance: DASATINIB
  3. SPRYCEL [Suspect]
     Active Substance: DASATINIB
  4. VIBEGRON [Concomitant]
     Active Substance: VIBEGRON
     Indication: Product used for unknown indication
     Route: 048
  5. AMLODIPINE [Concomitant]
     Active Substance: AMLODIPINE BESYLATE
     Indication: Product used for unknown indication
     Route: 048

REACTIONS (3)
  - Eye swelling [Unknown]
  - Headache [Not Recovered/Not Resolved]
  - Migraine [Not Recovered/Not Resolved]

NARRATIVE: CASE EVENT DATE: 20231201
